FAERS Safety Report 18099976 (Version 3)
Quarter: 2021Q4

REPORT INFORMATION
  Report Type: Other
  Country: CA (occurrence: CA)
  Receive Date: 20200731
  Receipt Date: 20211020
  Transmission Date: 20220303
  Serious: Yes (Death, Hospitalization, Other)
  Sender: FDA-Public Use
  Company Number: CA-TOLMAR, INC.-20CA022114

PATIENT
  Sex: Male

DRUGS (4)
  1. ELIGARD [Suspect]
     Active Substance: LEUPROLIDE ACETATE
     Indication: Prostate cancer
     Dosage: 22.5 MG, Q 3 MONTH
     Route: 058
     Dates: start: 20200429
  2. FRAGMIN [Concomitant]
     Active Substance: DALTEPARIN SODIUM
     Indication: Product used for unknown indication
     Dosage: UNK
     Route: 042
  3. HYDROMORPHONE [Concomitant]
     Active Substance: HYDROMORPHONE
     Indication: Product used for unknown indication
     Dosage: UNK
  4. ZYTIGA [Concomitant]
     Active Substance: ABIRATERONE ACETATE
     Indication: Product used for unknown indication
     Dosage: UNK

REACTIONS (6)
  - Pancreatitis acute [Unknown]
  - Jaundice cholestatic [Unknown]
  - Terminal state [Unknown]
  - Dyspnoea [Unknown]
  - Pain [Unknown]
  - Prostate cancer [Fatal]
